FAERS Safety Report 9006526 (Version 3)
Quarter: 2013Q2

REPORT INFORMATION
  Report Type: Spontaneous
  Country: US (occurrence: US)
  Receive Date: 20130110
  Receipt Date: 20130401
  Transmission Date: 20140414
  Serious: Yes (Hospitalization)
  Sender: FDA-Public Use
  Company Number: US-BAYER-2013-002280

PATIENT
  Age: 46 Year
  Sex: Female
  Weight: 82 kg

DRUGS (6)
  1. YASMIN [Suspect]
     Indication: MENORRHAGIA
     Dosage: UNK
     Dates: start: 20060822, end: 20071222
  2. PSEUDOFED [Concomitant]
     Dosage: 2 TABLETS
  3. LEXAPRO [Concomitant]
     Indication: MENOPAUSAL SYMPTOMS
     Dosage: 10 MG, DAILY
  4. TYLENOL [Concomitant]
     Dosage: 1000 MG, PRN
  5. LORTAB [Concomitant]
  6. SYNTHROID [Concomitant]
     Indication: BLOOD THYROID STIMULATING HORMONE INCREASED

REACTIONS (6)
  - Deep vein thrombosis [Recovered/Resolved]
  - Pulmonary embolism [Recovered/Resolved]
  - Injury [Recovered/Resolved]
  - General physical health deterioration [Recovered/Resolved]
  - Pain [Recovered/Resolved]
  - Off label use [None]
